FAERS Safety Report 14327546 (Version 2)
Quarter: 2018Q1

REPORT INFORMATION
  Report Type: Spontaneous
  Country: US (occurrence: US)
  Receive Date: 20171227
  Receipt Date: 20180111
  Transmission Date: 20180509
  Serious: No
  Sender: FDA-Public Use
  Company Number: US-PFIZER INC-2017545024

PATIENT
  Age: 64 Year
  Sex: Female
  Weight: 80.29 kg

DRUGS (10)
  1. TEGRETOL [Suspect]
     Active Substance: CARBAMAZEPINE
     Indication: SWELLING
     Dosage: UNK
  2. TEGRETOL [Suspect]
     Active Substance: CARBAMAZEPINE
     Indication: TRIGEMINAL NEURALGIA
  3. PREDNISONE. [Suspect]
     Active Substance: PREDNISONE
     Indication: TRIGEMINAL NEURALGIA
  4. TOPAMAX [Suspect]
     Active Substance: TOPIRAMATE
     Indication: TRIGEMINAL NEURALGIA
  5. LIDODERM [Suspect]
     Active Substance: LIDOCAINE
     Indication: TRIGEMINAL NEURALGIA
  6. GABAPENTIN. [Suspect]
     Active Substance: GABAPENTIN
     Indication: TRIGEMINAL NEURALGIA
  7. TOPAMAX [Suspect]
     Active Substance: TOPIRAMATE
     Indication: SWELLING
     Dosage: UNK
  8. LIDODERM [Suspect]
     Active Substance: LIDOCAINE
     Indication: SWELLING
     Dosage: UNK
  9. PREDNISONE. [Suspect]
     Active Substance: PREDNISONE
     Indication: SWELLING
     Dosage: UNK
  10. GABAPENTIN. [Suspect]
     Active Substance: GABAPENTIN
     Indication: SWELLING
     Dosage: UNK

REACTIONS (1)
  - Drug ineffective for unapproved indication [Unknown]
